FAERS Safety Report 5975772-5 (Version None)
Quarter: 2008Q4

REPORT INFORMATION
  Report Type: 
  Country: None (occurrence: None)
  Receive Date: 20081202
  Receipt Date: 20081126
  Transmission Date: 20090506
  Serious: Yes (Death)
  Sender: FDA-Public Use
  Company Number: GB-MERCK-0811GBR00095

PATIENT
  Age: 77 Year
  Sex: Female

DRUGS (16)
  1. ZOCOR [Suspect]
     Route: 048
     Dates: start: 20060101
  2. AMINOPHYLLIN TAB [Suspect]
     Route: 048
     Dates: start: 20080810
  3. CARBOCYSTEINE [Suspect]
     Route: 048
     Dates: start: 20080810
  4. GABAPENTIN [Suspect]
     Route: 048
     Dates: start: 20080811
  5. AMITRIPTYLINE HYDROCHLORIDE [Concomitant]
     Route: 065
  6. ASPIRIN [Concomitant]
     Route: 065
  7. DILTIAZEM HYDROCHLORIDE [Concomitant]
     Route: 065
  8. DIPYRIDAMOLE [Concomitant]
     Route: 065
  9. ENALAPRIL MALEATE [Concomitant]
     Route: 065
  10. OMEPRAZOLE [Concomitant]
     Route: 065
  11. ACETAMINOPHEN [Concomitant]
     Route: 065
  12. AMINOPHYLLINE [Concomitant]
     Route: 065
  13. BECLOMETHASONE DIPROPIONATE [Concomitant]
  14. ALBUTEROL [Concomitant]
  15. TIOTROPIUM BROMIDE [Concomitant]
  16. TRAMADOL HYDROCHLORIDE [Concomitant]
     Route: 065

REACTIONS (3)
  - PANCREATITIS [None]
  - RENAL FAILURE [None]
  - RHABDOMYOLYSIS [None]
